FAERS Safety Report 10715844 (Version 2)
Quarter: 2015Q4

REPORT INFORMATION
  Report Type: Spontaneous
  Country: US (occurrence: US)
  Receive Date: 20150116
  Receipt Date: 20151013
  Transmission Date: 20160304
  Serious: No
  Sender: FDA-Public Use
  Company Number: US-ASTRAZENECA-2015SE03987

PATIENT
  Sex: Female

DRUGS (6)
  1. SEROQUEL [Suspect]
     Active Substance: QUETIAPINE FUMARATE
     Indication: DEPRESSION
     Dosage: TWICE DAILY
     Route: 048
     Dates: start: 2011, end: 2014
  2. ZOCOR [Concomitant]
     Active Substance: SIMVASTATIN
     Dates: start: 2001
  3. GABAPENTIN. [Concomitant]
     Active Substance: GABAPENTIN
     Indication: PAIN
  4. REVATIO [Suspect]
     Active Substance: SILDENAFIL CITRATE
     Dosage: 20 MG, 1 DF, THREE TIMES A DAY, NON AZ PRODUCT
     Route: 065
  5. LIPITOR [Suspect]
     Active Substance: ATORVASTATIN CALCIUM
     Indication: BLOOD CHOLESTEROL ABNORMAL
     Dosage: NON AZ PRODUCT
     Route: 065
     Dates: start: 2001, end: 2004
  6. HYDROCHLOROTHIAZIDE. [Concomitant]
     Active Substance: HYDROCHLOROTHIAZIDE
     Indication: OEDEMA
     Dates: start: 2004, end: 2004

REACTIONS (2)
  - Memory impairment [Unknown]
  - Asthenia [Unknown]
